FAERS Safety Report 17621296 (Version 1)
Quarter: 2020Q2

REPORT INFORMATION
  Report Type: Spontaneous
  Country: US (occurrence: US)
  Receive Date: 20200402
  Receipt Date: 20200402
  Transmission Date: 20200713
  Serious: Yes (Other)
  Sender: FDA-Public Use
  Company Number: None

PATIENT
  Age: 20 Year
  Sex: Female

DRUGS (7)
  1. AUBAGIO [Concomitant]
     Active Substance: TERIFLUNOMIDE
  2. METHYLPRED [Concomitant]
     Active Substance: METHYLPREDNISOLONE
  3. H.P. ACTHAR [Suspect]
     Active Substance: CORTICOTROPIN
     Indication: MULTIPLE SCLEROSIS
     Route: 058
     Dates: start: 20200228
  4. MELOXICAM. [Concomitant]
     Active Substance: MELOXICAM
  5. MAG OXIDE [Concomitant]
     Active Substance: MAGNESIUM OXIDE
  6. ACYCLOVIR. [Concomitant]
     Active Substance: ACYCLOVIR
  7. BUT/APAPCAF [Concomitant]

REACTIONS (2)
  - Therapy cessation [None]
  - Brain operation [None]
